FAERS Safety Report 4661721-9 (Version None)
Quarter: 2005Q2

REPORT INFORMATION
  Report Type: 
  Country: None (occurrence: None)
  Receive Date: 20050513
  Receipt Date: 20040329
  Transmission Date: 20051028
  Serious: Yes (Death, Hospitalization)
  Sender: FDA-Public Use
  Company Number: US-ROCHE-363380

PATIENT
  Age: 43 Year
  Sex: Male

DRUGS (2)
  1. PEGASYS [Suspect]
     Dosage: ROUTE WAS REPORTED AS INJECTABLE
     Route: 050
  2. COPEGUS [Suspect]
     Route: 048

REACTIONS (4)
  - DRUG INEFFECTIVE [None]
  - HEPATIC FAILURE [None]
  - THERAPY NON-RESPONDER [None]
  - VOMITING [None]
